FAERS Safety Report 4643415-9 (Version None)
Quarter: 2005Q2

REPORT INFORMATION
  Report Type: 
  Country: None (occurrence: None)
  Receive Date: 20050324
  Receipt Date: 20050211
  Transmission Date: 20051028
  Serious: Yes (Life-Threatening)
  Sender: FDA-Public Use
  Company Number: 212408

PATIENT
  Age: 66 Year
  Sex: Male
  Weight: 75.7 kg

DRUGS (6)
  1. AVASTIN [Suspect]
     Indication: COLORECTAL CANCER METASTATIC
     Dosage: 425 MG,Q2W,INTRAVENOUS
     Route: 042
     Dates: start: 20040507, end: 20041217
  2. LISINOPRIL [Concomitant]
  3. ZANTAC [Concomitant]
  4. VITAMINS (VITAMINS NOS) [Concomitant]
  5. NORVASC [Concomitant]
  6. HYDROCODONE/ACETAMINOPHEN (ACETAMINOPHEN, HYDROCODONE BITARTRATE) [Concomitant]

REACTIONS (2)
  - NEPHROTIC SYNDROME [None]
  - RENAL FAILURE [None]
